FAERS Safety Report 10674167 (Version 3)
Quarter: 2015Q2

REPORT INFORMATION
  Report Type: Spontaneous
  Country: US (occurrence: US)
  Receive Date: 20141224
  Receipt Date: 20150603
  Transmission Date: 20150821
  Serious: Yes (Other)
  Sender: FDA-Public Use
  Company Number: US-AMGEN-USASP2014098640

PATIENT
  Age: 47 Year
  Sex: Male

DRUGS (2)
  1. ENBREL [Suspect]
     Active Substance: ETANERCEPT
     Indication: PSORIATIC ARTHROPATHY
     Dosage: 50 MG, EVERY 2 TO 3 WEEKS
     Route: 065
     Dates: end: 201505
  2. ENBREL [Suspect]
     Active Substance: ETANERCEPT
     Indication: PSORIASIS

REACTIONS (10)
  - Balance disorder [Not Recovered/Not Resolved]
  - Feeling abnormal [Not Recovered/Not Resolved]
  - High density lipoprotein increased [Not Recovered/Not Resolved]
  - Treatment noncompliance [Unknown]
  - Cerebrovascular accident [Not Recovered/Not Resolved]
  - Stress [Unknown]
  - Ingrown hair [Unknown]
  - Inappropriate schedule of drug administration [Unknown]
  - Infection [Unknown]
  - Psoriasis [Unknown]

NARRATIVE: CASE EVENT DATE: 201404
